FAERS Safety Report 12689096 (Version 1)
Quarter: 2016Q3

REPORT INFORMATION
  Report Type: Spontaneous
  Country: IT (occurrence: IT)
  Receive Date: 20160826
  Receipt Date: 20160826
  Transmission Date: 20161109
  Serious: Yes (Other)
  Sender: FDA-Public Use
  Company Number: IT-ACCORD-043444

PATIENT
  Age: 63 Year
  Sex: Male

DRUGS (2)
  1. CISPLATIN ACCORD [Suspect]
     Active Substance: CISPLATIN
     Indication: LUNG ADENOCARCINOMA
     Dosage: STRENGTH: 1 MG/ML
     Route: 042
     Dates: start: 20160729, end: 20160729
  2. GEMCITABINE ACCORD [Concomitant]
     Active Substance: GEMCITABINE HYDROCHLORIDE
     Dosage: STRENGTH: 2 G

REACTIONS (2)
  - Hypertension [Recovered/Resolved]
  - Heat stroke [Recovered/Resolved]

NARRATIVE: CASE EVENT DATE: 20160729
